FAERS Safety Report 7450232-3 (Version None)
Quarter: 2011Q2

REPORT INFORMATION
  Report Type: 
  Country: None (occurrence: None)
  Receive Date: 20110428
  Receipt Date: 20110428
  Transmission Date: 20111010
  Serious: Yes (Other)
  Sender: FDA-Public Use
  Company Number: None

PATIENT
  Age: 31 Year
  Sex: Female

DRUGS (2)
  1. SENSORCAINE [Suspect]
     Indication: CAESAREAN SECTION
     Dosage: ONCE INTRADISCAL (INTRASPINA
     Route: 024
  2. SENSORCAINE [Suspect]
     Indication: SPINAL ANAESTHESIA
     Dosage: ONCE INTRADISCAL (INTRASPINA
     Route: 024

REACTIONS (1)
  - ANAESTHETIC COMPLICATION [None]
